FAERS Safety Report 25429834 (Version 1)
Quarter: 2025Q2

REPORT INFORMATION
  Report Type: Spontaneous
  Country: CN (occurrence: CN)
  Receive Date: 20250612
  Receipt Date: 20250612
  Transmission Date: 20250716
  Serious: Yes (Life-Threatening, Other)
  Sender: FRESENIUS KABI
  Company Number: CN-FreseniusKabi-FK202507890

PATIENT
  Age: 56 Year
  Sex: Male
  Weight: 86 kg

DRUGS (5)
  1. OMEGAVEN [Suspect]
     Active Substance: FISH OIL
     Indication: Nutritional supplementation
     Dosage: FOA: INJECTION?AROUND 16:00
     Route: 041
     Dates: start: 20250528, end: 20250528
  2. AMINO ACIDS\DEXTROSE\ELECTROLYTES NOS [Suspect]
     Active Substance: AMINO ACIDS\DEXTROSE\ELECTROLYTES NOS
     Indication: Nutritional supplementation
     Dosage: FOA: INJECTION
     Route: 041
     Dates: start: 20250528, end: 20250528
  3. VITAMINS [Suspect]
     Active Substance: VITAMINS
     Indication: Vitamin supplementation
     Dosage: FOA: POWDER FOR INJECTION
     Route: 041
     Dates: start: 20250528, end: 20250528
  4. INSULIN NOS [Concomitant]
     Active Substance: INSULIN NOS
     Indication: Product used for unknown indication
  5. POTASSIUM CHLORIDE [Concomitant]
     Active Substance: POTASSIUM CHLORIDE
     Indication: Product used for unknown indication

REACTIONS (1)
  - Anaphylactic shock [Recovering/Resolving]

NARRATIVE: CASE EVENT DATE: 20250528
